FAERS Safety Report 14162222 (Version 1)
Quarter: 2017Q4

REPORT INFORMATION
  Report Type: Spontaneous
  Country: US (occurrence: US)
  Receive Date: 20171106
  Receipt Date: 20171106
  Transmission Date: 20180321
  Serious: Yes (Hospitalization)
  Sender: FDA-Public Use
  Company Number: US-ASTRAZENECA-2017SF11975

PATIENT
  Age: 22372 Day
  Sex: Male
  Weight: 133.4 kg

DRUGS (4)
  1. MONTELUKAST [Concomitant]
     Active Substance: MONTELUKAST SODIUM
     Indication: SINUS DISORDER
     Dosage: DAILY
     Route: 048
     Dates: start: 2017
  2. SYMBICORT [Suspect]
     Active Substance: BUDESONIDE\FORMOTEROL FUMARATE DIHYDRATE
     Indication: CHRONIC OBSTRUCTIVE PULMONARY DISEASE
     Dosage: 160/4.5 MCG 2 PUFFS TWICE PER DAY
     Route: 055
     Dates: start: 201503
  3. BENZONATATE. [Concomitant]
     Active Substance: BENZONATATE
     Indication: COUGH
     Dosage: TWO TIMES A DAY
     Route: 048
  4. TUDORZA PRESSAIR [Suspect]
     Active Substance: ACLIDINIUM BROMIDE
     Indication: CHRONIC OBSTRUCTIVE PULMONARY DISEASE
     Route: 055
     Dates: start: 201603

REACTIONS (11)
  - Weight increased [Unknown]
  - Dysphonia [Unknown]
  - Visual impairment [Unknown]
  - Ear discomfort [Unknown]
  - Rotator cuff syndrome [Unknown]
  - Sinusitis [Not Recovered/Not Resolved]
  - Cough [Unknown]
  - Drug dose omission [Unknown]
  - Disability [Unknown]
  - Laziness [Unknown]
  - Product quality issue [Unknown]

NARRATIVE: CASE EVENT DATE: 201503
